FAERS Safety Report 19807824 (Version 1)
Quarter: 2021Q3

REPORT INFORMATION
  Report Type: Spontaneous
  Country: NL (occurrence: NL)
  Receive Date: 20210908
  Receipt Date: 20210908
  Transmission Date: 20211014
  Serious: Yes (Hospitalization)
  Sender: FDA-Public Use
  Company Number: NL-MYLANLABS-2021M1058734

PATIENT
  Sex: Male
  Weight: 110 kg

DRUGS (4)
  1. MONTELUKAST [Concomitant]
     Active Substance: MONTELUKAST SODIUM
     Dosage: 10 MILLIGRAM, OMHULDE TABLET, 10 MG (MILLIGRAM))
  2. PREDNISONE. [Suspect]
     Active Substance: PREDNISONE
     Indication: COLITIS ULCERATIVE
     Dosage: 1 DOSAGE FORM, QD (1X PER DAG 1 STUK, BEHALVE BIJ HET AFBOUWEN NAAR 5MG/0MG)
     Dates: start: 202011
  3. MESALAZINE [Concomitant]
     Active Substance: MESALAMINE
     Dosage: 1.2 MILLIGRAM, TABLET MET GEREGULEERDE AFGIFTE, 1,2 G (GRAM))
  4. ADALIMUMAB [Concomitant]
     Active Substance: ADALIMUMAB
     Dosage: 40 MILLIGRAM, INJECTIEVLOEISTOF

REACTIONS (10)
  - Diarrhoea [Recovered/Resolved]
  - Libido disorder [Recovered/Resolved]
  - Acne [Recovered/Resolved]
  - Nausea [Recovered/Resolved]
  - Vomiting [Recovered/Resolved]
  - Myalgia [Recovered/Resolved]
  - Affect lability [Recovered/Resolved]
  - Bone pain [Recovered/Resolved]
  - Arthralgia [Recovered/Resolved]
  - Hormone level abnormal [Recovered/Resolved]
